FAERS Safety Report 7294655-4 (Version None)
Quarter: 2011Q1

REPORT INFORMATION
  Report Type: 
  Country: None (occurrence: None)
  Receive Date: 20110216
  Receipt Date: 20110204
  Transmission Date: 20110831
  Serious: Yes (Hospitalization)
  Sender: FDA-Public Use
  Company Number: US-RANBAXY-2011US-41662

PATIENT
  Age: 47 Year
  Sex: Female

DRUGS (2)
  1. IBUPROFEN [Suspect]
     Indication: PRODUCT USED FOR UNKNOWN INDICATION
     Dosage: UPTO 3600 MG/DAY
     Route: 065
  2. CALCIUM CARBONATE [Suspect]
     Indication: DYSPEPSIA
     Dosage: UPTO 4500 MG/DAY
     Route: 048

REACTIONS (2)
  - MILK-ALKALI SYNDROME [None]
  - RENAL FAILURE ACUTE [None]
